FAERS Safety Report 8068935-9 (Version None)
Quarter: 2012Q1

REPORT INFORMATION
  Report Type: 
  Country: None (occurrence: None)
  Receive Date: 20120118
  Receipt Date: 20120106
  Transmission Date: 20120608
  Serious: Yes (Death, Other)
  Sender: FDA-Public Use
  Company Number: 1000026528

PATIENT
  Age: 86 Year
  Sex: Female

DRUGS (6)
  1. AMIODARON HYDROCHLORIDE (AMIODARONE HYDROCHLORIDE) (TABLETS) (AMIODARO [Concomitant]
  2. DIGOXIN [Concomitant]
  3. FUROSEMID (FUROSEMIDE) (TABLETS) (FUROSEMIDE) [Concomitant]
  4. HALOPERIDOL (HALOPERIDOL) (DROPS(FOR ORAL USE)) (HALOPERIDOL) [Concomitant]
  5. ESCITALOPRAM [Suspect]
     Dosage: 5 MG (5 MG,1 IN 1 D),ORAL
     Route: 048
     Dates: start: 20111206, end: 20111213
  6. POTASSIUM CHLORIDE (POTASSIUM CHLORIDE) (TABLETS) (POTASSIUM CHLORIDE) [Concomitant]

REACTIONS (4)
  - AGGRESSION [None]
  - DELUSION [None]
  - HYPONATRAEMIA [None]
  - BRONCHOPNEUMONIA [None]
